FAERS Safety Report 20678829 (Version 2)
Quarter: 2022Q2

REPORT INFORMATION
  Report Type: Report from Study
  Country: KR (occurrence: KR)
  Receive Date: 20220406
  Receipt Date: 20220415
  Transmission Date: 20220721
  Serious: Yes (Hospitalization)
  Sender: FDA-Public Use
  Company Number: KR-EXELIXIS-XL18422050205

PATIENT

DRUGS (7)
  1. CABOZANTINIB [Suspect]
     Active Substance: CABOZANTINIB
     Indication: Renal cell carcinoma
     Dosage: 60 MG, QD
     Route: 048
     Dates: start: 20220120
  2. CABOZANTINIB [Suspect]
     Active Substance: CABOZANTINIB
     Dosage: 40 MG, QD
     Route: 048
     Dates: start: 20220318, end: 20220405
  3. Furix [Concomitant]
     Indication: Oedema
     Dosage: UNK
  4. Mypol [Concomitant]
     Indication: Pain
     Dosage: UNK
  5. METOCLOPRAMIDE HYDROCHLORIDE [Concomitant]
     Active Substance: METOCLOPRAMIDE HYDROCHLORIDE
     Indication: Nausea
     Dosage: UNK
  6. RAMIPRIL [Concomitant]
     Active Substance: RAMIPRIL
     Indication: Proteinuria
     Dosage: UNK
  7. SPIRODACTON [Concomitant]
     Indication: Oedema
     Dosage: UNK

REACTIONS (2)
  - Shock [Recovering/Resolving]
  - Pericardial effusion [Recovered/Resolved]

NARRATIVE: CASE EVENT DATE: 20220321
